FAERS Safety Report 5798815-0 (Version None)
Quarter: 2008Q3

REPORT INFORMATION
  Report Type: 
  Country: None (occurrence: None)
  Receive Date: 20080702
  Receipt Date: 20080625
  Transmission Date: 20090109
  Serious: Yes (Hospitalization)
  Sender: FDA-Public Use
  Company Number: FR-WYE-G01761808

PATIENT
  Sex: Male

DRUGS (6)
  1. EFFEXOR [Suspect]
     Indication: DEPRESSION
     Dosage: 100 MG TOTAL DAILY
     Route: 048
     Dates: end: 20080307
  2. FORLAX [Concomitant]
     Dosage: UNKNOWN
     Route: 048
  3. VASTAREL [Concomitant]
     Route: 048
  4. RAMIPRIL [Concomitant]
     Indication: HYPERTENSION
     Route: 048
  5. NOCTRAN 10 [Concomitant]
     Route: 048
  6. OXAZEPAM [Concomitant]
     Dosage: 75 MG TOTAL DAILY
     Route: 048

REACTIONS (9)
  - BRAIN CONTUSION [None]
  - CEREBELLAR HAEMATOMA [None]
  - CONFUSIONAL STATE [None]
  - FALL [None]
  - HYPONATRAEMIA [None]
  - INTRACRANIAL VENOUS SINUS THROMBOSIS [None]
  - MENINGORRHAGIA [None]
  - PSYCHOMOTOR RETARDATION [None]
  - SKULL FRACTURE [None]
